FAERS Safety Report 9765993 (Version 1)
Quarter: 2013Q4

REPORT INFORMATION
  Report Type: Spontaneous
  Country: US (occurrence: US)
  Receive Date: 20131217
  Receipt Date: 20131217
  Transmission Date: 20140711
  Serious: No
  Sender: FDA-Public Use
  Company Number: US-GLAXOSMITHKLINE-A1014775A

PATIENT
  Age: 61 Year
  Sex: Male

DRUGS (10)
  1. VOTRIENT [Suspect]
     Indication: RENAL CELL CARCINOMA
     Dosage: 800MG PER DAY
     Route: 048
     Dates: start: 201111
  2. METOPROLOL [Concomitant]
  3. LISINOPRIL [Concomitant]
  4. GEMFIBROZIL [Concomitant]
  5. RANEXA [Concomitant]
  6. VYTORIN [Concomitant]
  7. MULTIVITAMIN [Concomitant]
  8. VITAMIN C [Concomitant]
  9. CALCIUM WITH VITAMIN D [Concomitant]
  10. ASPIRIN [Concomitant]

REACTIONS (7)
  - Hair colour changes [Not Recovered/Not Resolved]
  - Alopecia [Unknown]
  - Abdominal pain upper [Unknown]
  - Diarrhoea [Unknown]
  - Decreased appetite [Unknown]
  - Weight decreased [Unknown]
  - Peripheral coldness [Unknown]
